FAERS Safety Report 9316118 (Version 2)
Quarter: 2013Q3

REPORT INFORMATION
  Report Type: Spontaneous
  Country: US (occurrence: US)
  Receive Date: 20130530
  Receipt Date: 20130911
  Transmission Date: 20140515
  Serious: No
  Sender: FDA-Public Use
  Company Number: US-BIOGENIDEC-2013BI048314

PATIENT
  Sex: Female

DRUGS (2)
  1. TYSABRI [Suspect]
     Indication: MULTIPLE SCLEROSIS
     Route: 042
     Dates: start: 20070130, end: 20090408
  2. TYSABRI [Suspect]
     Indication: MULTIPLE SCLEROSIS
     Route: 042
     Dates: start: 20110920

REACTIONS (5)
  - Foot fracture [Recovered/Resolved]
  - Gait disturbance [Not Recovered/Not Resolved]
  - Loss of control of legs [Unknown]
  - Limb injury [Unknown]
  - Contusion [Unknown]
